FAERS Safety Report 6768242-8 (Version None)
Quarter: 2010Q2

REPORT INFORMATION
  Report Type: 
  Country: None (occurrence: None)
  Receive Date: 20100610
  Receipt Date: 20100607
  Transmission Date: 20101027
  Serious: Yes (Hospitalization)
  Sender: FDA-Public Use
  Company Number: GER/UKI/10/0013483

PATIENT
  Age: 57 Year
  Sex: Male

DRUGS (2)
  1. CETIRIZINE (CETIRIZINE) [Suspect]
     Indication: RASH
     Dosage: 4 IN 1 D
  2. STEROIDS [Concomitant]

REACTIONS (3)
  - HYPERTENSION [None]
  - MALAISE [None]
  - PARAESTHESIA [None]
